FAERS Safety Report 20465398 (Version 1)
Quarter: 2022Q1

REPORT INFORMATION
  Report Type: Spontaneous
  Country: SI (occurrence: SI)
  Receive Date: 20220212
  Receipt Date: 20220212
  Transmission Date: 20220423
  Serious: Yes (Other)
  Sender: FDA-Public Use
  Company Number: None

PATIENT
  Age: 63 Year
  Sex: Male

DRUGS (2)
  1. IMATINIB [Suspect]
     Active Substance: IMATINIB
     Indication: Product used for unknown indication
     Dosage: UNK
     Dates: start: 2011
  2. IMATINIB [Suspect]
     Active Substance: IMATINIB
     Dosage: UNK
     Dates: start: 2015

REACTIONS (4)
  - C-kit gene mutation [Unknown]
  - Liver disorder [Unknown]
  - Disease progression [Unknown]
  - Therapy partial responder [Unknown]

NARRATIVE: CASE EVENT DATE: 20150101
